FAERS Safety Report 18198351 (Version 1)
Quarter: 2020Q3

REPORT INFORMATION
  Report Type: Spontaneous
  Country: CN (occurrence: CN)
  Receive Date: 20200826
  Receipt Date: 20200826
  Transmission Date: 20201103
  Serious: Yes (Other)
  Sender: FDA-Public Use
  Company Number: CN-PFIZER INC-2020326523

PATIENT
  Age: 56 Year
  Sex: Female
  Weight: 65 kg

DRUGS (1)
  1. CYTOSAR [Suspect]
     Active Substance: CYTARABINE
     Dosage: 0.2 G, 1X/DAY
     Route: 041
     Dates: start: 20200710, end: 20200710

REACTIONS (9)
  - Pleural effusion [Unknown]
  - Asphyxia [Unknown]
  - Angina pectoris [Unknown]
  - Infection [Unknown]
  - Chest discomfort [Unknown]
  - Arthralgia [Unknown]
  - Oxygen saturation decreased [Unknown]
  - Acute lung injury [Recovering/Resolving]
  - Body temperature increased [Unknown]

NARRATIVE: CASE EVENT DATE: 20200710
